FAERS Safety Report 17050314 (Version 10)
Quarter: 2020Q2

REPORT INFORMATION
  Report Type: Spontaneous
  Country: US (occurrence: US)
  Receive Date: 20191119
  Receipt Date: 20200519
  Transmission Date: 20200713
  Serious: Yes (Hospitalization)
  Sender: FDA-Public Use
  Company Number: US-ACTELION-A-NJ2019-198077

PATIENT
  Age: 49 Year
  Sex: Male
  Weight: 81.63 kg

DRUGS (5)
  1. REMODULIN [Suspect]
     Active Substance: TREPROSTINIL
     Indication: PRODUCT USED FOR UNKNOWN INDICATION
     Dosage: 80 NG/KG, PER MIN
     Route: 042
  2. TADALAFIL. [Concomitant]
     Active Substance: TADALAFIL
  3. REMODULIN [Suspect]
     Active Substance: TREPROSTINIL
     Dosage: 69 NG/KG, PER MIN
     Route: 042
  4. ELIQUIS [Concomitant]
     Active Substance: APIXABAN
  5. OPSUMIT [Suspect]
     Active Substance: MACITENTAN
     Indication: PULMONARY HYPERTENSION
     Dosage: 10 MG, QD
     Route: 048

REACTIONS (4)
  - Atrial septal defect repair [Unknown]
  - Cardiac disorder [Unknown]
  - Sinusitis [Unknown]
  - Pain in extremity [Unknown]

NARRATIVE: CASE EVENT DATE: 201911
